FAERS Safety Report 15157684 (Version 1)
Quarter: 2018Q3

REPORT INFORMATION
  Report Type: Spontaneous
  Country: US (occurrence: US)
  Receive Date: 20180620
  Receipt Date: 20180620
  Transmission Date: 20181010
  Serious: Yes (Hospitalization)
  Sender: FDA-Public Use
  Company Number: None

PATIENT
  Age: 54 Year
  Sex: Female
  Weight: 110.25 kg

DRUGS (6)
  1. HALDOL [Concomitant]
     Active Substance: HALOPERIDOL
  2. SEROQUEL [Concomitant]
     Active Substance: QUETIAPINE FUMARATE
  3. DEPAKOTE [Suspect]
     Active Substance: DIVALPROEX SODIUM
  4. TRILEPTAL [Concomitant]
     Active Substance: OXCARBAZEPINE
  5. ZYPREXA [Concomitant]
     Active Substance: OLANZAPINE
  6. TRAZODONE [Concomitant]
     Active Substance: TRAZODONE HYDROCHLORIDE

REACTIONS (5)
  - Pollakiuria [None]
  - Diarrhoea [None]
  - Insomnia [None]
  - Urticaria [None]
  - Sleep apnoea syndrome [None]
